FAERS Safety Report 25005512 (Version 1)
Quarter: 2025Q1

REPORT INFORMATION
  Report Type: Spontaneous
  Country: JP (occurrence: JP)
  Receive Date: 20250224
  Receipt Date: 20250224
  Transmission Date: 20250409
  Serious: Yes (Death)
  Sender: BAUSCH AND LOMB
  Company Number: JP-BAUSCH-BL-2025-002532

PATIENT
  Sex: Male

DRUGS (3)
  1. RIFAXIMIN [Suspect]
     Active Substance: RIFAXIMIN
     Indication: Hyperammonaemia
     Route: 048
  2. RIFAXIMIN [Suspect]
     Active Substance: RIFAXIMIN
     Indication: Hepatic encephalopathy
  3. UNSPECIFIED INGREDIENT [Concomitant]
     Active Substance: UNSPECIFIED INGREDIENT
     Indication: Hepatic failure

REACTIONS (3)
  - Alcoholic liver disease [Fatal]
  - Blood bilirubin increased [Unknown]
  - Laboratory test abnormal [Unknown]
